FAERS Safety Report 6167038-8 (Version None)
Quarter: 2009Q2

REPORT INFORMATION
  Report Type: 
  Country: None (occurrence: None)
  Receive Date: 20090424
  Receipt Date: 20090414
  Transmission Date: 20091009
  Serious: Yes (Life-Threatening)
  Sender: FDA-Public Use
  Company Number: FR-PFIZER INC-2009198128

PATIENT

DRUGS (6)
  1. SUTENT [Suspect]
     Indication: PROSTATE CANCER
     Dosage: 37.5 MG, UNK
     Route: 048
     Dates: start: 20081016
  2. HYZAAR [Concomitant]
     Indication: HYPERTENSION
     Dosage: UNK
     Route: 048
     Dates: start: 19980101
  3. LIPANTHYL [Concomitant]
     Indication: HYPERCHOLESTEROLAEMIA
     Dosage: UNK
     Route: 048
     Dates: start: 19980101
  4. ZOMETA [Concomitant]
     Indication: PROSTATE CANCER
     Dosage: UNK
     Route: 042
     Dates: start: 20080930
  5. ZOLADEX [Concomitant]
     Indication: PROSTATE CANCER
     Dosage: UNK
     Route: 058
     Dates: start: 20060715
  6. INNOHEP [Concomitant]
     Indication: PULMONARY EMBOLISM
     Dosage: 0.7 UNK, 1X/DAY
     Route: 058
     Dates: start: 20090102

REACTIONS (2)
  - ANAEMIA [None]
  - RENAL FAILURE ACUTE [None]
